FAERS Safety Report 19046229 (Version 1)
Quarter: 2021Q1

REPORT INFORMATION
  Report Type: Spontaneous
  Country: ES (occurrence: ES)
  Receive Date: 20210323
  Receipt Date: 20210323
  Transmission Date: 20210420
  Serious: Yes (Hospitalization)
  Sender: FDA-Public Use
  Company Number: ES-PFIZER INC-2021282208

PATIENT
  Age: 11 Year
  Sex: Male

DRUGS (6)
  1. CICLOSPORINE [Concomitant]
     Active Substance: CYCLOSPORINE
     Dosage: UNK
  2. COLECALCIFEROL [Concomitant]
     Active Substance: CHOLECALCIFEROL
     Dosage: UNK
  3. TRIMETHOPRIM SULFAMETHOXAZOLE [Concomitant]
     Active Substance: SULFAMETHOXAZOLE\TRIMETHOPRIM
     Dosage: UNK
  4. POSACONAZOLE [Concomitant]
     Active Substance: POSACONAZOLE
     Dosage: UNK
  5. PHENYTOIN SODIUM. [Suspect]
     Active Substance: PHENYTOIN SODIUM
     Dosage: UNK
  6. PENICILLINE [Concomitant]
     Active Substance: PENICILLIN G
     Dosage: UNK

REACTIONS (1)
  - Anticonvulsant drug level increased [Recovered/Resolved]
